FAERS Safety Report 9207378 (Version 2)
Quarter: 2014Q1

REPORT INFORMATION
  Report Type: Spontaneous
  Country: US (occurrence: US)
  Receive Date: 20130403
  Receipt Date: 20140102
  Transmission Date: 20141002
  Serious: Yes (Other)
  Sender: FDA-Public Use
  Company Number: US-BAYER-2013-039741

PATIENT
  Age: 44 Year
  Sex: Female

DRUGS (11)
  1. YAZ [Suspect]
     Dosage: UNK
     Dates: start: 20061204, end: 200912
  2. YASMIN [Suspect]
     Dosage: UNK
     Dates: start: 20061204, end: 200912
  3. TERCONAZOLE [Concomitant]
     Dosage: .4 %, UNK
  4. VALTREX [Concomitant]
     Dosage: 1 G, UNK
  5. BENZONATATE [Concomitant]
     Dosage: 100 MG, UNK
  6. FACTIVE [Concomitant]
     Dosage: 320 MG, UNK
  7. COMBIVENT INHALER [Concomitant]
  8. PREDNISONE [Concomitant]
     Dosage: 10 MG, UNK
  9. DOXYCYCLINE [Concomitant]
  10. FLUTICASONE [Concomitant]
  11. ADVAIR [Concomitant]

REACTIONS (6)
  - Gallbladder disorder [None]
  - Biliary dyskinesia [None]
  - Injury [None]
  - Pain [None]
  - Emotional distress [None]
  - Anxiety [None]
